FAERS Safety Report 15117434 (Version 1)
Quarter: 2018Q3

REPORT INFORMATION
  Report Type: Spontaneous
  Country: US (occurrence: US)
  Receive Date: 20180706
  Receipt Date: 20180706
  Transmission Date: 20181010
  Serious: No
  Sender: FDA-Public Use
  Company Number: US-BEH-2018092541

PATIENT
  Sex: Female

DRUGS (1)
  1. HIZENTRA [Suspect]
     Active Substance: HUMAN IMMUNOGLOBULIN G
     Indication: IMMUNODEFICIENCY
     Dosage: 10 G, TOT
     Route: 058
     Dates: start: 20180701, end: 20180701

REACTIONS (2)
  - Administration site swelling [Unknown]
  - Administration site erythema [Recovered/Resolved]

NARRATIVE: CASE EVENT DATE: 20180701
